FAERS Safety Report 6280592-0 (Version None)
Quarter: 2009Q3

REPORT INFORMATION
  Report Type: 
  Country: None (occurrence: None)
  Receive Date: 20090724
  Receipt Date: 20080912
  Transmission Date: 20100115
  Serious: Yes (Hospitalization)
  Sender: FDA-Public Use
  Company Number: A0748284A

PATIENT
  Age: 56 Year
  Sex: Female
  Weight: 108.2 kg

DRUGS (9)
  1. AVANDIA [Suspect]
     Dosage: 4MG PER DAY
     Route: 048
     Dates: start: 20040201, end: 20070401
  2. AVANDAMET [Suspect]
     Dosage: 4MG PER DAY
     Route: 048
     Dates: start: 20050501, end: 20060401
  3. GLUCOPHAGE [Concomitant]
  4. METFORMIN HCL [Concomitant]
  5. TOPROL-XL [Concomitant]
  6. PREDNISONE TAB [Concomitant]
  7. SIMVASTATIN [Concomitant]
  8. NITROGLYCERIN [Concomitant]
  9. NORVASC [Concomitant]

REACTIONS (1)
  - CARDIAC FAILURE CONGESTIVE [None]
